FAERS Safety Report 23948734 (Version 2)
Quarter: 2024Q2

REPORT INFORMATION
  Report Type: Spontaneous
  Country: US (occurrence: US)
  Receive Date: 20240607
  Receipt Date: 20240607
  Transmission Date: 20240716
  Serious: Yes (Hospitalization, Other)
  Sender: FDA-Public Use
  Company Number: US-PFIZER INC-202400180438

PATIENT
  Age: 14 Year
  Sex: Female

DRUGS (7)
  1. ETANERCEPT [Suspect]
     Active Substance: ETANERCEPT
     Indication: Stomatitis
     Dosage: UNK
     Route: 065
  2. ETANERCEPT [Suspect]
     Active Substance: ETANERCEPT
     Indication: Prophylaxis
  3. ETANERCEPT [Suspect]
     Active Substance: ETANERCEPT
     Indication: Hypersensitivity
  4. PREDNISONE [Suspect]
     Active Substance: PREDNISONE
     Indication: Stomatitis
     Dosage: UNK (TAPER)
     Route: 065
  5. PREDNISONE [Suspect]
     Active Substance: PREDNISONE
     Indication: Rash
     Dosage: UNK
     Route: 065
  6. DOXYCYCLINE [Concomitant]
     Active Substance: DOXYCYCLINE\DOXYCYCLINE HYCLATE
     Indication: Evidence based treatment
     Dosage: UNK
     Route: 065
  7. DOXYCYCLINE [Concomitant]
     Active Substance: DOXYCYCLINE\DOXYCYCLINE HYCLATE
     Indication: Stomatitis

REACTIONS (16)
  - Hypersensitivity [Recovered/Resolved]
  - Dehydration [Unknown]
  - Malnutrition [Unknown]
  - Osteonecrosis [Unknown]
  - Drug effective for unapproved indication [Unknown]
  - Therapeutic product effect incomplete [Unknown]
  - Pain in extremity [Unknown]
  - Hypophagia [Unknown]
  - Amenorrhoea [Unknown]
  - Weight decreased [Unknown]
  - Off label use [Unknown]
  - Rash [Unknown]
  - Dysuria [Unknown]
  - Hot flush [Unknown]
  - Vulvovaginal dryness [Recovering/Resolving]
  - Vaginal haemorrhage [Recovering/Resolving]
